FAERS Safety Report 6607375-3 (Version None)
Quarter: 2010Q1

REPORT INFORMATION
  Report Type: 
  Country: None (occurrence: None)
  Receive Date: 20100301
  Receipt Date: 20100219
  Transmission Date: 20100710
  Serious: Yes (Hospitalization)
  Sender: FDA-Public Use
  Company Number: BR-BIOGENIDEC-2010BI005986

PATIENT
  Age: 35 Year
  Sex: Female

DRUGS (5)
  1. AVONEX [Suspect]
     Indication: MULTIPLE SCLEROSIS
     Route: 030
     Dates: start: 20060101
  2. CITALOPRAM HYDROBROMIDE [Concomitant]
  3. GABAPENTIN [Concomitant]
  4. TYLEX [Concomitant]
     Indication: MULTIPLE SCLEROSIS
  5. ULTRACET [Concomitant]
     Indication: MULTIPLE SCLEROSIS

REACTIONS (1)
  - CALCULUS BLADDER [None]
